FAERS Safety Report 18479235 (Version 1)
Quarter: 2020Q4

REPORT INFORMATION
  Report Type: Spontaneous
  Country: US (occurrence: US)
  Receive Date: 20201105
  Receipt Date: 20201105
  Transmission Date: 20210114
  Serious: No
  Sender: FDA-Public Use
  Company Number: None

PATIENT
  Age: 48 Year
  Sex: Male

DRUGS (1)
  1. TALTZ [Suspect]
     Active Substance: IXEKIZUMAB
     Indication: PSORIASIS
     Dosage: ?
     Route: 058
     Dates: start: 202006

REACTIONS (7)
  - Splenomegaly [None]
  - Pneumonia [None]
  - Diabetes mellitus [None]
  - Sepsis [None]
  - Kidney infection [None]
  - Hypoxia [None]
  - Blood glucose increased [None]
